FAERS Safety Report 12306482 (Version 1)
Quarter: 2016Q2

REPORT INFORMATION
  Report Type: Spontaneous
  Country: GB (occurrence: GB)
  Receive Date: 20160426
  Receipt Date: 20160426
  Transmission Date: 20160815
  Serious: Yes (Other)
  Sender: FDA-Public Use
  Company Number: GB-PFIZER INC-2016225703

PATIENT
  Age: 37 Year
  Sex: Female
  Weight: 73 kg

DRUGS (6)
  1. LYRICA [Suspect]
     Active Substance: PREGABALIN
     Dosage: 300 MG, UNK
     Route: 048
  2. FERROUS SULFATE. [Concomitant]
     Active Substance: FERROUS SULFATE
     Dosage: UNK
  3. LYRICA [Suspect]
     Active Substance: PREGABALIN
     Dosage: 150 MG, UNK
     Route: 048
  4. LYRICA [Suspect]
     Active Substance: PREGABALIN
     Indication: NEURALGIA
     Dosage: 450 MG, UNK
     Route: 048
     Dates: start: 20150302
  5. DESOMONO [Concomitant]
     Dosage: UNK
  6. LYRICA [Suspect]
     Active Substance: PREGABALIN
     Dosage: 100 MG, UNK
     Route: 048

REACTIONS (9)
  - Muscle spasms [Recovering/Resolving]
  - Nausea [Recovering/Resolving]
  - Disturbance in attention [Recovering/Resolving]
  - Impaired work ability [Recovering/Resolving]
  - Crying [Recovering/Resolving]
  - Drug withdrawal syndrome [Unknown]
  - Somnolence [Recovering/Resolving]
  - Vision blurred [Recovering/Resolving]
  - Dissociation [Recovering/Resolving]
